FAERS Safety Report 7436041-X (Version None)
Quarter: 2011Q2

REPORT INFORMATION
  Report Type: 
  Country: None (occurrence: None)
  Receive Date: 20110425
  Receipt Date: 20110415
  Transmission Date: 20111010
  Serious: Yes (Hospitalization)
  Sender: FDA-Public Use
  Company Number: US-MPIJNJ-2011-01575

PATIENT
  Age: 80 Year
  Sex: Female

DRUGS (3)
  1. DECADRON [Suspect]
     Indication: MULTIPLE MYELOMA
     Dosage: 40 MG, CYCLIC
     Route: 042
     Dates: start: 20110117
  2. VELCADE [Suspect]
     Indication: MULTIPLE MYELOMA
     Dosage: 1.0 MG/M2, CYCLIC
     Route: 042
     Dates: start: 20110117
  3. ZOMETA [Suspect]
     Indication: MULTIPLE MYELOMA
     Dosage: 4 MG, MONTHLY
     Route: 042
     Dates: start: 20110120

REACTIONS (5)
  - HYPERCHOLESTEROLAEMIA [None]
  - URINARY TRACT INFECTION [None]
  - PULMONARY OEDEMA [None]
  - ACUTE MYOCARDIAL INFARCTION [None]
  - LEFT VENTRICULAR DYSFUNCTION [None]
